FAERS Safety Report 7385952-2 (Version None)
Quarter: 2011Q1

REPORT INFORMATION
  Report Type: 
  Country: None (occurrence: None)
  Receive Date: 20110331
  Receipt Date: 20110322
  Transmission Date: 20110831
  Serious: Yes (Death)
  Sender: FDA-Public Use
  Company Number: US-SANOFI-AVENTIS-2011SA009934

PATIENT
  Age: 62 Year
  Sex: Male
  Weight: 71 kg

DRUGS (13)
  1. JEVTANA KIT [Suspect]
     Dosage: EVERY 3 WEEKS
     Route: 041
     Dates: start: 20101018, end: 20101018
  2. JEVTANA KIT [Suspect]
     Dosage: EVERY 3 WEEKS
     Route: 041
     Dates: start: 20101129, end: 20101129
  3. ESTRAMUSTINE [Suspect]
     Dosage: DAYS 1 TO 5
     Route: 048
     Dates: start: 20110126
  4. PREDNISONE [Concomitant]
     Indication: PROSTATE CANCER
     Route: 048
  5. JEVTANA KIT [Suspect]
     Dosage: EVERY 3 WEEKS
     Route: 041
     Dates: start: 20100928, end: 20100928
  6. TAXOTERE [Suspect]
     Indication: PROSTATE CANCER
     Dosage: DAY 1 EVERY 21 DAYS
     Route: 041
     Dates: start: 20110126, end: 20110126
  7. JEVTANA KIT [Suspect]
     Indication: PROSTATE CANCER
     Dosage: EVERY 3 WEEKS
     Route: 041
     Dates: start: 20100909, end: 20100909
  8. LACTULOSE [Concomitant]
     Indication: CONSTIPATION
     Dosage: 15 CC PO Q 6 HRS PRN CONSTIPATION
     Route: 048
  9. JEVTANA KIT [Suspect]
     Dosage: EVERY 3 WEEKS
     Route: 041
     Dates: start: 20101108, end: 20101108
  10. ETHINYL ESTRADIOL [Concomitant]
     Route: 048
     Dates: start: 20110107, end: 20110126
  11. COUMADIN [Concomitant]
     Dosage: 1-2 MG
  12. ESTRAMUSTINE [Suspect]
     Indication: PROSTATE CANCER
     Route: 048
     Dates: start: 20101228, end: 20110106
  13. OXYCODONE [Concomitant]
     Indication: PAIN
     Dosage: 15 TO 30 MG PO Q 4HR PRN PAIN
     Route: 048

REACTIONS (2)
  - DISEASE PROGRESSION [None]
  - DRUG INEFFECTIVE [None]
